FAERS Safety Report 7461021-8 (Version None)
Quarter: 2011Q2

REPORT INFORMATION
  Report Type: 
  Country: None (occurrence: None)
  Receive Date: 20110505
  Receipt Date: 20110427
  Transmission Date: 20111010
  Serious: Yes (Disabling)
  Sender: FDA-Public Use
  Company Number: PT-GENZYME-FABR-1001520

PATIENT

DRUGS (7)
  1. ACETAMINOPHEN [Concomitant]
     Indication: PYREXIA
  2. FABRAZYME [Suspect]
     Dosage: 0.9 MG/KG, Q2W
     Route: 042
     Dates: start: 20050803, end: 20100819
  3. FABRAZYME [Suspect]
     Indication: FABRY'S DISEASE
     Dosage: 1 MG/KG, Q2W
     Route: 042
     Dates: start: 20101119
  4. FABRAZYME [Suspect]
     Dosage: 1.17 MG/KG, Q2W
     Route: 042
     Dates: start: 20091022, end: 20101105
  5. FABRAZYME [Suspect]
     Dosage: 0.5 MG/KG, Q2W
     Route: 042
     Dates: start: 20091008, end: 20091008
  6. FABRAZYME [Suspect]
     Dosage: 1 MG/KG, Q2W
     Route: 042
     Dates: start: 20090703, end: 20100924
  7. ACETAMINOPHEN [Concomitant]
     Indication: PAIN
     Dosage: UNK
     Dates: start: 20010101

REACTIONS (3)
  - MUSCULOSKELETAL PAIN [None]
  - DEPRESSION [None]
  - PARAESTHESIA [None]
